FAERS Safety Report 15034169 (Version 1)
Quarter: 2018Q2

REPORT INFORMATION
  Report Type: Spontaneous
  Country: ES (occurrence: ES)
  Receive Date: 20180620
  Receipt Date: 20180620
  Transmission Date: 20180711
  Serious: Yes (Life-Threatening, Hospitalization, Disabling)
  Sender: FDA-Public Use
  Company Number: ES-ROCHE-2142228

PATIENT
  Age: 49 Year
  Sex: Female

DRUGS (3)
  1. TRASTUZUMAB. [Suspect]
     Active Substance: TRASTUZUMAB
     Indication: BREAST CANCER
     Dosage: ON 11/APR/2018, SHE RECEIVED MOST RECENT DOSE OF TRASTUZUMAB
     Route: 042
     Dates: start: 20180411
  2. DOCETAXEL ACCORD [Suspect]
     Active Substance: DOCETAXEL
     Indication: BREAST CANCER
     Dosage: ON 11/APR/2018, SHE RECEIVED MOST RECENT DOSE OF DOCETAXEL
     Route: 042
     Dates: start: 20180411
  3. CARBOPLATIN ACCORD [Suspect]
     Active Substance: CARBOPLATIN
     Indication: BREAST CANCER
     Dosage: ON 11/APR/2018, SHE RECEIVED MOST RECENT DOSE OF CARBOPLATIN
     Route: 042
     Dates: start: 20180411

REACTIONS (1)
  - Colitis [Recovering/Resolving]

NARRATIVE: CASE EVENT DATE: 20180415
